FAERS Safety Report 4937056-3 (Version None)
Quarter: 2006Q1

REPORT INFORMATION
  Report Type: 
  Country: None (occurrence: None)
  Receive Date: 20060309
  Receipt Date: 20030605
  Transmission Date: 20060701
  Serious: Yes (Hospitalization, Disabling)
  Sender: FDA-Public Use
  Company Number: US-MERCK-0306USA00877

PATIENT
  Age: 44 Year
  Sex: Male
  Weight: 114 kg

DRUGS (3)
  1. VIOXX [Suspect]
     Indication: PAIN
     Route: 048
     Dates: start: 20000802, end: 20010803
  2. VIOXX [Suspect]
     Indication: BACK PAIN
     Route: 048
     Dates: start: 20000802, end: 20010803
  3. TYLENOL W/ CODEINE NO. 4 [Concomitant]
     Route: 048
     Dates: start: 19980101

REACTIONS (17)
  - ABDOMINAL PAIN [None]
  - ADVERSE DRUG REACTION [None]
  - ADVERSE EVENT [None]
  - BLOOD PRESSURE INCREASED [None]
  - CERVICOBRACHIAL SYNDROME [None]
  - CHEST PAIN [None]
  - CONTUSION [None]
  - DEPRESSION [None]
  - DIZZINESS [None]
  - FACET JOINT SYNDROME [None]
  - FALL [None]
  - HYPERTENSION [None]
  - JOINT SPRAIN [None]
  - MIGRAINE [None]
  - NASOPHARYNGITIS [None]
  - RHINITIS [None]
  - ROAD TRAFFIC ACCIDENT [None]
